FAERS Safety Report 23116798 (Version 1)
Quarter: 2023Q4

REPORT INFORMATION
  Report Type: Spontaneous
  Country: GB (occurrence: GB)
  Receive Date: 20231027
  Receipt Date: 20231027
  Transmission Date: 20240110
  Serious: Yes (Hospitalization)
  Sender: FDA-Public Use
  Company Number: GB-PURDUE-USA-2023-0305535

PATIENT
  Age: 82 Year
  Sex: Male

DRUGS (1)
  1. OXYCODONE HYDROCHLORIDE [Suspect]
     Active Substance: OXYCODONE HYDROCHLORIDE
     Indication: Product used for unknown indication
     Dosage: 4 MILLIGRAM (10MG/ML)
     Route: 065

REACTIONS (4)
  - Respiratory depression [Recovered/Resolved]
  - Wheezing [Unknown]
  - Oxygen consumption increased [Unknown]
  - Dyspnoea [Unknown]
